FAERS Safety Report 15581187 (Version 1)
Quarter: 2018Q4

REPORT INFORMATION
  Report Type: Spontaneous
  Country: US (occurrence: US)
  Receive Date: 20181105
  Receipt Date: 20181105
  Transmission Date: 20190205
  Serious: Yes (Other)
  Sender: FDA-Public Use
  Company Number: US-UNICHEM PHARMACEUTICALS (USA) INC-UCM201803-000056

PATIENT
  Age: 62 Year
  Sex: Female
  Weight: 81.19 kg

DRUGS (20)
  1. LEVOTHYROXINE. [Concomitant]
     Active Substance: LEVOTHYROXINE
  2. BUPROPION HCL [Concomitant]
     Active Substance: BUPROPION HYDROCHLORIDE
  3. FERROUS GLUCONATE [Concomitant]
     Active Substance: FERROUS GLUCONATE
     Indication: MINERAL SUPPLEMENTATION
  4. LAMOTRIGINE. [Suspect]
     Active Substance: LAMOTRIGINE
  5. GLIPIZIDE. [Concomitant]
     Active Substance: GLIPIZIDE
  6. METOPROLOL TARTRATE. [Concomitant]
     Active Substance: METOPROLOL TARTRATE
  7. LAMOTRIGINE. [Suspect]
     Active Substance: LAMOTRIGINE
  8. PREDNISONE. [Concomitant]
     Active Substance: PREDNISONE
     Indication: RENAL TRANSPLANT
  9. SAPHRIS [Concomitant]
     Active Substance: ASENAPINE MALEATE
     Indication: BIPOLAR DISORDER
  10. SAPHRIS [Concomitant]
     Active Substance: ASENAPINE MALEATE
  11. TACROLIMUS. [Concomitant]
     Active Substance: TACROLIMUS
  12. ATORVASTATIN [Concomitant]
     Active Substance: ATORVASTATIN
  13. BENZTROPINE MES [Concomitant]
     Active Substance: BENZTROPINE MESYLATE
     Indication: TREMOR
  14. INSULIN [Concomitant]
     Active Substance: INSULIN NOS
  15. BACITRACIN. [Concomitant]
     Active Substance: BACITRACIN
     Indication: TREMOR
  16. LAMOTRIGINE. [Suspect]
     Active Substance: LAMOTRIGINE
     Indication: BIPOLAR DISORDER
     Dates: start: 2003
  17. LAMOTRIGINE. [Suspect]
     Active Substance: LAMOTRIGINE
  18. HYDROXYZINE HCL [Concomitant]
     Active Substance: HYDROXYZINE HYDROCHLORIDE
     Indication: ANXIETY
     Dates: start: 201711
  19. PANTOPRAZOLE [Concomitant]
     Active Substance: PANTOPRAZOLE
     Indication: GASTROOESOPHAGEAL REFLUX DISEASE
  20. MYCOTHENOLATE [Concomitant]
     Indication: RENAL TRANSPLANT

REACTIONS (6)
  - Hypersensitivity [Not Recovered/Not Resolved]
  - Blister [Recovering/Resolving]
  - Anaemia [Not Recovered/Not Resolved]
  - Rash [Recovering/Resolving]
  - White blood cell count increased [Not Recovered/Not Resolved]
  - Haemorrhage [Recovered/Resolved]

NARRATIVE: CASE EVENT DATE: 20180119
